FAERS Safety Report 5709848-4 (Version None)
Quarter: 2008Q2

REPORT INFORMATION
  Report Type: 
  Country: None (occurrence: None)
  Receive Date: 20080418
  Receipt Date: 20070301
  Transmission Date: 20081010
  Serious: No
  Sender: FDA-Public Use
  Company Number: US-ASTRAZENECA-2007UW03959

PATIENT
  Age: 77 Year
  Sex: Male

DRUGS (2)
  1. TOPROL-XL [Suspect]
     Route: 048
     Dates: end: 20070104
  2. VYTORIN [Suspect]
     Dates: end: 20070104

REACTIONS (2)
  - BLOOD TRIGLYCERIDES INCREASED [None]
  - HIGH DENSITY LIPOPROTEIN DECREASED [None]
